FAERS Safety Report 12142500 (Version 2)
Quarter: 2017Q1

REPORT INFORMATION
  Report Type: Spontaneous
  Country: US (occurrence: US)
  Receive Date: 20160303
  Receipt Date: 20170207
  Transmission Date: 20170428
  Serious: Yes (Hospitalization, Other)
  Sender: FDA-Public Use
  Company Number: US-HQ SPECIALTY-US-2015INT000698

PATIENT

DRUGS (16)
  1. OXYCODONE [Concomitant]
     Active Substance: OXYCODONE
     Indication: PRODUCT USED FOR UNKNOWN INDICATION
     Dosage: UNK
  2. DILTIAZEM. [Concomitant]
     Active Substance: DILTIAZEM
     Indication: PRODUCT USED FOR UNKNOWN INDICATION
     Dosage: UNK
  3. TAXOL [Suspect]
     Active Substance: PACLITAXEL
     Indication: ANGIOSARCOMA
     Dosage: WEEKLY
  4. TAXOL [Suspect]
     Active Substance: PACLITAXEL
     Indication: METASTASES TO LUNG
     Dosage: WEEKLY
     Dates: start: 20160322
  5. METOPROLOL. [Concomitant]
     Active Substance: METOPROLOL
     Indication: PRODUCT USED FOR UNKNOWN INDICATION
     Dosage: UNK
  6. SUTENT [Suspect]
     Active Substance: SUNITINIB MALATE
     Indication: METASTASES TO STOMACH
  7. SENNA                              /00142201/ [Concomitant]
     Active Substance: SENNA LEAF
     Indication: PRODUCT USED FOR UNKNOWN INDICATION
     Dosage: UNK
  8. SUTENT [Suspect]
     Active Substance: SUNITINIB MALATE
     Indication: METASTASES TO LUNG
     Dosage: 25 MG, DAILY FOR 28 DAYS ON / 14 DAYS OFF
     Dates: start: 20160322
  9. SUTENT [Suspect]
     Active Substance: SUNITINIB MALATE
     Indication: METASTASES TO BREAST
  10. TAXOL [Suspect]
     Active Substance: PACLITAXEL
     Indication: METASTASES TO STOMACH
  11. SYNTHROID [Concomitant]
     Active Substance: LEVOTHYROXINE SODIUM
     Indication: PRODUCT USED FOR UNKNOWN INDICATION
     Dosage: UNK
  12. TAXOL [Suspect]
     Active Substance: PACLITAXEL
     Indication: METASTASES TO BREAST
  13. SUTENT [Suspect]
     Active Substance: SUNITINIB MALATE
     Indication: ANGIOSARCOMA
     Dosage: 50 MG, 28 DAYS ON/14 DAYS OFF, UNK
     Dates: start: 20150929, end: 20151013
  14. AROMASIN [Concomitant]
     Active Substance: EXEMESTANE
     Indication: PRODUCT USED FOR UNKNOWN INDICATION
     Dosage: UNK
  15. COUMADIN [Concomitant]
     Active Substance: WARFARIN SODIUM
     Indication: PRODUCT USED FOR UNKNOWN INDICATION
     Dosage: UNK
  16. LACTULOSE. [Concomitant]
     Active Substance: LACTULOSE
     Indication: PRODUCT USED FOR UNKNOWN INDICATION
     Dosage: UNK

REACTIONS (30)
  - Dyspnoea [Recovering/Resolving]
  - Pancytopenia [Unknown]
  - Pain [Recovering/Resolving]
  - Mental status changes [Recovering/Resolving]
  - Dysphonia [Unknown]
  - Rash [Recovering/Resolving]
  - Dehydration [Recovering/Resolving]
  - Pyrexia [Recovering/Resolving]
  - Dry mouth [Unknown]
  - Discomfort [Recovering/Resolving]
  - Fatigue [Recovering/Resolving]
  - Blood pressure systolic increased [Recovering/Resolving]
  - Peripheral swelling [Unknown]
  - White blood cell count decreased [Recovering/Resolving]
  - Disorientation [Recovering/Resolving]
  - Impaired healing [Recovering/Resolving]
  - Gait disturbance [Recovering/Resolving]
  - Eating disorder [Unknown]
  - Urinary tract infection [Unknown]
  - International normalised ratio abnormal [Unknown]
  - Dysgeusia [Recovering/Resolving]
  - Chromaturia [Recovering/Resolving]
  - Alopecia [Recovering/Resolving]
  - Unevaluable event [Unknown]
  - Liver disorder [Unknown]
  - Dysphagia [Unknown]
  - Cough [Recovering/Resolving]
  - Listless [Recovering/Resolving]
  - Malaise [Recovering/Resolving]
  - Gastrointestinal disorder [Recovering/Resolving]

NARRATIVE: CASE EVENT DATE: 20151202
